FAERS Safety Report 25516797 (Version 1)
Quarter: 2025Q3

REPORT INFORMATION
  Report Type: Spontaneous
  Country: US (occurrence: US)
  Receive Date: 20250704
  Receipt Date: 20250704
  Transmission Date: 20251021
  Serious: No
  Sender: RADIUS PHARM
  Company Number: US-RADIUS HEALTH INC.-US-RADIUS-25046128

PATIENT
  Sex: Female

DRUGS (2)
  1. TYMLOS [Suspect]
     Active Substance: ABALOPARATIDE
     Indication: Osteoporosis
     Dosage: 80 MICROGRAM, QD
     Route: 058
  2. TYMLOS [Suspect]
     Active Substance: ABALOPARATIDE
     Indication: Pathological fracture

REACTIONS (11)
  - Asthenia [Unknown]
  - Chest discomfort [Unknown]
  - Nausea [Recovering/Resolving]
  - Headache [Recovering/Resolving]
  - Heart rate increased [Unknown]
  - Chest discomfort [Recovering/Resolving]
  - Respiratory rate increased [Recovered/Resolved]
  - Palpitations [Recovering/Resolving]
  - Dyspnoea [Unknown]
  - Product dose omission issue [Unknown]
  - Injection site bruising [Unknown]
